FAERS Safety Report 4752561-0 (Version None)
Quarter: 2005Q3

REPORT INFORMATION
  Report Type: 
  Country: None (occurrence: None)
  Receive Date: 20050823
  Receipt Date: 20050812
  Transmission Date: 20060218
  Serious: Yes (Congenital Anomaly)
  Sender: FDA-Public Use
  Company Number: 200512525GDS

PATIENT
  Sex: Female
  Weight: 4 kg

DRUGS (2)
  1. ASPIRIN [Suspect]
     Indication: ANTIPHOSPHOLIPID SYNDROME
     Dosage: 100 MG, TOTAL DAILY, TRANSPLACENTAL
     Route: 064
  2. PREDNISONE [Suspect]
     Indication: ANTIPHOSPHOLIPID SYNDROME
     Dosage: 2.5 MG, TOTAL DAILY, TRANSPLACENTAL
     Route: 064

REACTIONS (2)
  - DRUG EXPOSURE DURING PREGNANCY [None]
  - EBSTEIN'S ANOMALY [None]
